FAERS Safety Report 7378859-8 (Version None)
Quarter: 2011Q1

REPORT INFORMATION
  Report Type: 
  Country: None (occurrence: None)
  Receive Date: 20110328
  Receipt Date: 20110315
  Transmission Date: 20110831
  Serious: Yes (Hospitalization)
  Sender: FDA-Public Use
  Company Number: PHHY2011TW21037

PATIENT
  Sex: Male

DRUGS (1)
  1. GLEEVEC [Suspect]
     Indication: CHRONIC MYELOID LEUKAEMIA
     Dosage: 300 MG, DAILY
     Route: 048

REACTIONS (6)
  - VOMITING [None]
  - ASCITES [None]
  - OEDEMA PERIPHERAL [None]
  - DIARRHOEA [None]
  - DECREASED APPETITE [None]
  - HEPATIC CIRRHOSIS [None]
